FAERS Safety Report 12510588 (Version 3)
Quarter: 2020Q3

REPORT INFORMATION
  Report Type: Report from Study
  Country: CA (occurrence: CA)
  Receive Date: 20160629
  Receipt Date: 20170531
  Transmission Date: 20201104
  Serious: Yes (Hospitalization)
  Sender: FDA-Public Use
  Company Number: CA-PFIZER INC-2016316088

PATIENT
  Age: 55 Year
  Sex: Male

DRUGS (11)
  1. SENEKOT [Concomitant]
     Indication: CONSTIPATION
     Dosage: 10 MG, AS REQUIRED
     Route: 048
     Dates: start: 201509
  2. PROCHLORPERAZINE. [Concomitant]
     Active Substance: PROCHLORPERAZINE
     Indication: NAUSEA
     Dosage: 10 MG, 1X/DAY
     Route: 048
     Dates: start: 20160520
  3. LACTULOSE. [Concomitant]
     Active Substance: LACTULOSE
     Indication: CONSTIPATION
     Dosage: 2 TABLESPOONS, DAILY
     Route: 048
     Dates: start: 20160418
  4. HYDROMORPHONE HYDROCHLORIDE. [Suspect]
     Active Substance: HYDROMORPHONE HYDROCHLORIDE
     Indication: BONE PAIN
     Dosage: 4 MG FOR 1 HOUR
     Route: 042
     Dates: start: 20160401
  5. MEDI4736 [Suspect]
     Active Substance: DURVALUMAB
     Indication: SQUAMOUS CELL CARCINOMA OF HEAD AND NECK
     Dosage: 1500 MG, MONTHLY
     Route: 042
     Dates: start: 20160510, end: 20160510
  6. CELECOXIB. [Concomitant]
     Active Substance: CELECOXIB
     Indication: PAIN
     Dosage: 200 MG, 1X/DAY
     Route: 048
     Dates: start: 20160421
  7. ZOPICLONE [Concomitant]
     Active Substance: ZOPICLONE
     Indication: INSOMNIA
     Dosage: 7.5 MG, AS REQUIRED
     Route: 048
     Dates: start: 20160427
  8. FENTANYL. [Suspect]
     Active Substance: FENTANYL
     Indication: BONE PAIN
     Dosage: 50 UG, CYCLIC (EVERY 72 HOURS (Q72H))
     Route: 062
     Dates: start: 201505
  9. LYRICA [Concomitant]
     Active Substance: PREGABALIN
     Indication: ANXIETY
     Dosage: 150 MG, 2X/DAY
     Route: 048
     Dates: start: 20160508
  10. HYDROMORPHONE HYDROCHLORIDE. [Suspect]
     Active Substance: HYDROMORPHONE HYDROCHLORIDE
     Dosage: 3 MG, EVERY (Q) 30 MIN
     Route: 042
     Dates: start: 20160401
  11. TREMELIMUMAB. [Suspect]
     Active Substance: TREMELIMUMAB
     Indication: SQUAMOUS CELL CARCINOMA OF HEAD AND NECK
     Dosage: 75 MG, MONTHLY
     Route: 042
     Dates: start: 20160510, end: 20160510

REACTIONS (1)
  - Somnolence [Recovering/Resolving]

NARRATIVE: CASE EVENT DATE: 20160615
